FAERS Safety Report 5782879-4 (Version None)
Quarter: 2008Q2

REPORT INFORMATION
  Report Type: 
  Country: None (occurrence: None)
  Receive Date: 20080624
  Receipt Date: 20080610
  Transmission Date: 20081010
  Serious: Yes (Hospitalization, Other)
  Sender: FDA-Public Use
  Company Number: US-BAYER-200810183BCC

PATIENT
  Age: 58 Year
  Sex: Female
  Weight: 93 kg

DRUGS (11)
  1. ALEVE (CAPLET) [Suspect]
     Indication: BACK PAIN
     Dosage: UNIT DOSE: 220 MG
     Route: 048
     Dates: start: 20080105, end: 20080106
  2. ALEVE (CAPLET) [Suspect]
     Route: 048
     Dates: start: 20080105, end: 20080110
  3. BAYER EXTRA STRENGTH ASPIRIN [Suspect]
     Indication: BACK PAIN
     Dosage: TOTAL DAILY DOSE: 325 MG  UNIT DOSE: 325 MG
     Route: 048
  4. AMARYL [Concomitant]
  5. INSULIN [Concomitant]
  6. AVANDIA [Concomitant]
  7. METFORMIN HCL [Concomitant]
  8. TOPROL-XL [Concomitant]
  9. DIOVAN [Concomitant]
  10. ZETIA [Concomitant]
  11. SIMVASTATIN [Concomitant]

REACTIONS (2)
  - BLOOD URINE PRESENT [None]
  - CHROMATURIA [None]
